FAERS Safety Report 6528780-X (Version None)
Quarter: 2010Q1

REPORT INFORMATION
  Report Type: 
  Country: None (occurrence: None)
  Receive Date: 20100106
  Receipt Date: 20091228
  Transmission Date: 20100710
  Serious: Yes (Death)
  Sender: FDA-Public Use
  Company Number: US-BAXTER-2009BH016684

PATIENT
  Sex: Female

DRUGS (3)
  1. HEPARIN SODIUM INJECTION [Suspect]
     Indication: DRUG USE FOR UNKNOWN INDICATION
     Route: 042
     Dates: start: 20061201
  2. OXYCODONE [Concomitant]
     Indication: DRUG USE FOR UNKNOWN INDICATION
     Route: 065
  3. CHEMOTHERAPY [Concomitant]
     Indication: OVARIAN CANCER
     Route: 065

REACTIONS (6)
  - ASTHENIA [None]
  - DEATH [None]
  - DIZZINESS [None]
  - NAUSEA [None]
  - RASH [None]
  - URTICARIA [None]
